FAERS Safety Report 21917275 (Version 2)
Quarter: 2023Q1

REPORT INFORMATION
  Report Type: 
  Country: None (occurrence: None)
  Receive Date: 20230126
  Receipt Date: 20230209
  Transmission Date: 20230417
  Serious: No
  Sender: FDA-Public Use
  Company Number: None

PATIENT
  Age: 33 Year
  Sex: Female

DRUGS (1)
  1. MYORISAN [Suspect]
     Active Substance: ISOTRETINOIN

REACTIONS (4)
  - Pregnancy test false positive [Recovered/Resolved]
  - Off label use [Recovered/Resolved]
  - Treatment noncompliance [Recovered/Resolved]
  - Vaginal haemorrhage [Recovered/Resolved]
